FAERS Safety Report 8363011-X (Version None)
Quarter: 2012Q2

REPORT INFORMATION
  Report Type: 
  Country: None (occurrence: None)
  Receive Date: 20120516
  Receipt Date: 20111011
  Transmission Date: 20120825
  Serious: Yes (Hospitalization, Other)
  Sender: FDA-Public Use
  Company Number: US-ALEXION-A201101384

PATIENT
  Sex: Male
  Weight: 98.413 kg

DRUGS (2)
  1. SOLIRIS [Suspect]
     Indication: PAROXYSMAL NOCTURNAL HAEMOGLOBINURIA
     Dosage: 600 MG WEEKLY
     Route: 042
     Dates: start: 20110802, end: 20110823
  2. SOLIRIS [Suspect]
     Dosage: 900 MG Q2W (MAINTENANCE DOSE)
     Route: 042
     Dates: start: 20110830

REACTIONS (3)
  - INCISION SITE INFECTION [None]
  - POST PROCEDURAL HAEMORRHAGE [None]
  - HERNIA REPAIR [None]
